FAERS Safety Report 14474963 (Version 1)
Quarter: 2018Q1

REPORT INFORMATION
  Report Type: Spontaneous
  Country: IN (occurrence: IN)
  Receive Date: 20180201
  Receipt Date: 20180201
  Transmission Date: 20180509
  Serious: Yes (Hospitalization, Other)
  Sender: FDA-Public Use
  Company Number: IN-PFIZER INC-2018040095

PATIENT
  Age: 52 Year
  Sex: Male
  Weight: 62.6 kg

DRUGS (2)
  1. CRIZALK [Suspect]
     Active Substance: CRIZOTINIB
     Dosage: 250 MG, 1X/DAY
  2. CRIZALK [Suspect]
     Active Substance: CRIZOTINIB
     Indication: NON-SMALL CELL LUNG CANCER
     Dosage: 250 MG, 2X/DAY
     Dates: start: 201512

REACTIONS (8)
  - Condition aggravated [Unknown]
  - Cholelithiasis [Unknown]
  - Dysphonia [Unknown]
  - Neoplasm progression [Unknown]
  - Second primary malignancy [Unknown]
  - Gallbladder cancer [Unknown]
  - Benign prostatic hyperplasia [Unknown]
  - Syncope [Unknown]

NARRATIVE: CASE EVENT DATE: 20160208
